FAERS Safety Report 5634028-0 (Version None)
Quarter: 2008Q1

REPORT INFORMATION
  Report Type: 
  Country: None (occurrence: None)
  Receive Date: 20080131
  Receipt Date: 20071113
  Transmission Date: 20080703
  Serious: No
  Sender: FDA-Public Use
  Company Number: PHEH2007US14822

PATIENT
  Age: 57 Year
  Sex: Female

DRUGS (1)
  1. TEKTURNA [Suspect]
     Dosage: 300, QD, ORAL
     Route: 048
     Dates: start: 20071101

REACTIONS (2)
  - DIZZINESS [None]
  - FEELING ABNORMAL [None]
